FAERS Safety Report 16270132 (Version 1)
Quarter: 2019Q2

REPORT INFORMATION
  Report Type: Report from Study
  Country: US (occurrence: US)
  Receive Date: 20190503
  Receipt Date: 20190503
  Transmission Date: 20190711
  Serious: Yes (Other)
  Sender: FDA-Public Use
  Company Number: US-JNJFOC-20190414249

PATIENT
  Age: 86 Year
  Sex: Male

DRUGS (29)
  1. MELOXICAM. [Concomitant]
     Active Substance: MELOXICAM
  2. LANTUS [Concomitant]
     Active Substance: INSULIN GLARGINE
  3. FISH OIL [Concomitant]
     Active Substance: FISH OIL
  4. CYANOCOBALAMIN. [Concomitant]
     Active Substance: CYANOCOBALAMIN
  5. IMBRUVICA [Suspect]
     Active Substance: IBRUTINIB
     Indication: WALDENSTROM^S MACROGLOBULINAEMIA
     Route: 048
     Dates: start: 20180817
  6. ALEVE [Concomitant]
     Active Substance: NAPROXEN SODIUM
  7. PREDNISONE. [Concomitant]
     Active Substance: PREDNISONE
  8. OMEPRAZOLE. [Concomitant]
     Active Substance: OMEPRAZOLE
  9. HUMALOG [Concomitant]
     Active Substance: INSULIN LISPRO
  10. LASIX [Concomitant]
     Active Substance: FUROSEMIDE
  11. MAGNESIUM [Concomitant]
     Active Substance: MAGNESIUM
  12. ADVIL [Concomitant]
     Active Substance: IBUPROFEN
  13. PEPTO-BISMOL [Concomitant]
     Active Substance: BISMUTH SUBSALICYLATE
  14. ASPIRIN. [Concomitant]
     Active Substance: ASPIRIN
  15. IMBRUVICA [Suspect]
     Active Substance: IBRUTINIB
     Indication: WALDENSTROM^S MACROGLOBULINAEMIA
     Route: 048
     Dates: start: 20180424, end: 20180506
  16. IMBRUVICA [Suspect]
     Active Substance: IBRUTINIB
     Indication: WALDENSTROM^S MACROGLOBULINAEMIA
     Route: 048
     Dates: start: 20180815, end: 20181009
  17. LISINOPRIL. [Concomitant]
     Active Substance: LISINOPRIL
  18. IMBRUVICA [Suspect]
     Active Substance: IBRUTINIB
     Indication: WALDENSTROM^S MACROGLOBULINAEMIA
     Route: 048
     Dates: start: 20180517, end: 20180727
  19. IMBRUVICA [Suspect]
     Active Substance: IBRUTINIB
     Indication: WALDENSTROM^S MACROGLOBULINAEMIA
     Route: 048
     Dates: start: 20180731, end: 20180814
  20. BACLOFEN. [Suspect]
     Active Substance: BACLOFEN
     Indication: MUSCLE SPASMS
  21. TYLENOL [Concomitant]
     Active Substance: ACETAMINOPHEN
  22. IMBRUVICA [Suspect]
     Active Substance: IBRUTINIB
     Indication: WALDENSTROM^S MACROGLOBULINAEMIA
     Route: 048
     Dates: start: 20181119
  23. IMBRUVICA [Suspect]
     Active Substance: IBRUTINIB
     Indication: WALDENSTROM^S MACROGLOBULINAEMIA
     Route: 048
     Dates: start: 20190404
  24. COENZYME Q10 [Concomitant]
     Active Substance: UBIDECARENONE
  25. PRAVASTATIN. [Concomitant]
     Active Substance: PRAVASTATIN
  26. MULTIVITAMIN WITH FLUORIDE [Concomitant]
     Active Substance: .ALPHA.-TOCOPHEROL\.ALPHA.-TOCOPHEROL ACETATE\.ALPHA.-TOCOPHEROL ACETATE, DL-\ASCORBIC ACID\CHOLECALCIFEROL\COBALAMIN\CYANOCOBALAMIN\FLUORIDE ION\FOLIC ACID\NIACIN\NIACINAMIDE\PYRIDOXINE\PYRIDOXINE HYDROCHLORIDE\RIBOFLAVIN\SODIUM ASCORBATE\SODIUM FLUORIDE\THIAMINE\THIAMINE MONONITRATE\VITAMIN A\VITA
  27. AZELASTINE. [Concomitant]
     Active Substance: AZELASTINE HYDROCHLORIDE
  28. PRESERVISION AREDS [Concomitant]
     Active Substance: MINERALS\VITAMINS
  29. VITAMIN D3 [Concomitant]
     Active Substance: CHOLECALCIFEROL

REACTIONS (24)
  - Visual impairment [Unknown]
  - Bladder pain [Unknown]
  - Urine abnormality [Unknown]
  - Sinusitis [Recovered/Resolved]
  - Lip swelling [Unknown]
  - Muscle spasms [Recovered/Resolved]
  - Nausea [Unknown]
  - Urinary retention [Unknown]
  - Dizziness [Unknown]
  - Memory impairment [Unknown]
  - Sinus congestion [Recovering/Resolving]
  - Withdrawal syndrome [Unknown]
  - Abdominal distension [Unknown]
  - Rash [Unknown]
  - Dyspnoea [Unknown]
  - Arthralgia [Unknown]
  - Cough [Unknown]
  - Neuropathy peripheral [Unknown]
  - Balance disorder [Unknown]
  - Asthenia [Unknown]
  - Depressed mood [Unknown]
  - Pain [Recovering/Resolving]
  - Blood immunoglobulin M increased [Unknown]
  - Insomnia [Unknown]

NARRATIVE: CASE EVENT DATE: 201805
